FAERS Safety Report 6573866-7 (Version None)
Quarter: 2010Q1

REPORT INFORMATION
  Report Type: 
  Country: None (occurrence: None)
  Receive Date: 20100204
  Receipt Date: 20100204
  Transmission Date: 20100710
  Serious: Yes (Other)
  Sender: FDA-Public Use
  Company Number: None

PATIENT
  Age: 76 Year
  Sex: Female
  Weight: 74.8435 kg

DRUGS (1)
  1. HYALGAN INJECTED IN L. KNEE [Suspect]
     Dosage: 20 MG/2 ML WEEKLY 5 WEEKS

REACTIONS (1)
  - BLOOD PRESSURE DECREASED [None]
